FAERS Safety Report 17447334 (Version 2)
Quarter: 2020Q1

REPORT INFORMATION
  Report Type: Spontaneous
  Country: GB (occurrence: GB)
  Receive Date: 20200221
  Receipt Date: 20200324
  Transmission Date: 20200409
  Serious: Yes (Other)
  Sender: FDA-Public Use
  Company Number: GB-MYLANLABS-2020M1018601

PATIENT
  Age: 67 Year
  Sex: Female
  Weight: 32 kg

DRUGS (5)
  1. SERTRALINE [Suspect]
     Active Substance: SERTRALINE HYDROCHLORIDE
     Indication: PRODUCT USED FOR UNKNOWN INDICATION
     Dosage: 50 MILLIGRAM, QD (AFTER BREAKFAST)
     Dates: start: 20191113
  2. FERROUS FUMARATE [Concomitant]
     Active Substance: FERROUS FUMARATE
     Dosage: 1 DOSAGE FORM, QD
     Dates: start: 20191217
  3. PARACETAMOL [Concomitant]
     Active Substance: ACETAMINOPHEN
     Dosage: ONE TABLET FOUR TIMES DAILY
     Dates: start: 20181211, end: 20191217
  4. FERROUS SULFATE. [Concomitant]
     Active Substance: FERROUS SULFATE
     Dosage: 2 DOSAGE FORM, QD
     Dates: start: 20191203, end: 20191217
  5. LACTULOSE. [Concomitant]
     Active Substance: LACTULOSE
     Dosage: 30 MILLILITER, QD
     Dates: start: 20181211, end: 20191217

REACTIONS (1)
  - Inappropriate affect [Recovered/Resolved]

NARRATIVE: CASE EVENT DATE: 20191217
